FAERS Safety Report 8776498 (Version 2)
Quarter: 2014Q4

REPORT INFORMATION
  Report Type: Report from Study
  Country: US (occurrence: US)
  Receive Date: 20120910
  Receipt Date: 20141009
  Transmission Date: 20150529
  Serious: Yes (Death)
  Sender: FDA-Public Use
  Company Number: US-ROCHE-1118667

PATIENT
  Sex: Male

DRUGS (3)
  1. OXALIPLATIN. [Concomitant]
     Active Substance: OXALIPLATIN
  2. XELODA [Suspect]
     Active Substance: CAPECITABINE
     Indication: GASTRIC CANCER
     Dosage: 2 TABLETS TWICE A DAY (FOR 21 DAY THEN 7 DAY OFF)
     Route: 048
     Dates: start: 20111031
  3. XELODA [Suspect]
     Active Substance: CAPECITABINE
     Indication: GASTRIC CANCER

REACTIONS (1)
  - Death [Fatal]
